FAERS Safety Report 4827533-8 (Version None)
Quarter: 2005Q4

REPORT INFORMATION
  Report Type: 
  Country: None (occurrence: None)
  Receive Date: 20051114
  Receipt Date: 20051102
  Transmission Date: 20060501
  Serious: Yes (Hospitalization)
  Sender: FDA-Public Use
  Company Number: FR-BRISTOL-MYERS SQUIBB COMPANY-13167747

PATIENT
  Age: 63 Year
  Sex: Male

DRUGS (5)
  1. APROVEL TABS [Suspect]
     Indication: ESSENTIAL HYPERTENSION
     Dosage: DURATION OF THERAPY:  ^A FEW YEARS^
     Route: 048
  2. VASTEN TABS 20 MG [Suspect]
     Indication: HYPERCHOLESTEROLAEMIA
     Route: 048
  3. CHONDROSULF [Suspect]
     Indication: ARTHROPATHY
     Dosage: DURATION OF THERAPY:  ^A FEW YEARS^
     Route: 048
  4. ACETAMINOPHEN [Suspect]
     Indication: ARTHROPATHY
     Dosage: DURATION OF THERAPY:  ^A FEW YEARS^
     Route: 048
  5. TADENAN [Suspect]
     Indication: PROSTATIC DISORDER
     Dosage: DURATION OF THERAPY:  ^A FEW YEARS^
     Route: 048

REACTIONS (1)
  - ERYTHEMA MULTIFORME [None]
